FAERS Safety Report 9343091 (Version 1)
Quarter: 2013Q2

REPORT INFORMATION
  Report Type: Spontaneous
  Country: GB (occurrence: GB)
  Receive Date: 20130611
  Receipt Date: 20130611
  Transmission Date: 20140414
  Serious: Yes (Death)
  Sender: FDA-Public Use
  Company Number: PHHY2013GB058511

PATIENT
  Age: 81 Year
  Sex: Male

DRUGS (13)
  1. AMLODIPINE [Suspect]
     Indication: HYPERTENSION
     Dosage: 5 MG, QD
  2. EPREX [Suspect]
     Indication: ANAEMIA
     Dosage: 4000 IU, QW
     Route: 042
  3. EPREX [Suspect]
     Dosage: 4000 IU, QW2
     Route: 042
  4. PARACETAMOL [Concomitant]
     Dosage: 1 G, QD
  5. CEFALEXIN [Concomitant]
     Dosage: 250 MG, QD
  6. LANSOPRAZOLE [Concomitant]
     Dosage: 30 MG, QD
  7. ALLOPURINOL [Concomitant]
     Dosage: 100 MG, QD
  8. ASPIRIN [Concomitant]
     Dosage: 75 MG, QD
  9. FENTANYL [Concomitant]
     Route: 062
  10. SEVELAMER [Concomitant]
     Dosage: 800 MG, TID
  11. CYPROTERONE [Concomitant]
     Dosage: 100 MG, Q3MO
     Route: 050
  12. DEXAMETHASONE [Concomitant]
     Dosage: 0.5 MG, QD
  13. METOCLOPRAMIDE [Concomitant]
     Dosage: 10 MG, TID

REACTIONS (3)
  - Pneumonia [Fatal]
  - Prostate cancer metastatic [Fatal]
  - Renal failure chronic [Fatal]
